FAERS Safety Report 23415817 (Version 1)
Quarter: 2024Q1

REPORT INFORMATION
  Report Type: Spontaneous
  Country: US (occurrence: None)
  Receive Date: 20240117
  Receipt Date: 20240117
  Transmission Date: 20240410
  Serious: No
  Sender: FDA-Public Use
  Company Number: None

PATIENT
  Sex: 0

DRUGS (1)
  1. AMITIZA [Suspect]
     Active Substance: LUBIPROSTONE
     Dosage: OTHER STRENGTH : MCG;?FREQUENCY : TWICE A DAY;?

REACTIONS (2)
  - Treatment failure [None]
  - Therapy change [None]
